FAERS Safety Report 19937952 (Version 1)
Quarter: 2021Q4

REPORT INFORMATION
  Report Type: Spontaneous
  Country: US (occurrence: US)
  Receive Date: 20211011
  Receipt Date: 20211011
  Transmission Date: 20220303
  Serious: No
  Sender: FDA-Public Use
  Company Number: US-BAUSCH-BL-2021-032663

PATIENT
  Age: 72 Year
  Sex: Female

DRUGS (4)
  1. PROLENSA [Suspect]
     Active Substance: BROMFENAC SODIUM
     Indication: Eye inflammation
     Route: 047
     Dates: start: 20210912
  2. PROLENSA [Suspect]
     Active Substance: BROMFENAC SODIUM
     Indication: Postoperative care
  3. ATENOLOL [Concomitant]
     Active Substance: ATENOLOL
     Indication: Product used for unknown indication
  4. ATORVASTATIN [Concomitant]
     Active Substance: ATORVASTATIN
     Indication: Product used for unknown indication

REACTIONS (2)
  - Vitreous floaters [Not Recovered/Not Resolved]
  - Headache [Recovered/Resolved]

NARRATIVE: CASE EVENT DATE: 20210901
